FAERS Safety Report 4428923-8 (Version None)
Quarter: 2004Q3

REPORT INFORMATION
  Report Type: 
  Country: None (occurrence: None)
  Receive Date: 20040818
  Receipt Date: 20040812
  Transmission Date: 20050211
  Serious: Yes (Hospitalization)
  Sender: FDA-Public Use
  Company Number: US-BRISTOL-MYERS SQUIBB COMPANY-12670105

PATIENT
  Age: 80 Year
  Sex: Male
  Weight: 72 kg

DRUGS (3)
  1. CETUXIMAB [Suspect]
     Indication: PANCREATIC CARCINOMA
     Dosage: INITIAL TX DATE: 29-JUN-04. TOTAL DOSE ADM: 465MG. PT REC'D A TOTAL OF 3 DOSES
     Route: 042
     Dates: start: 20040727, end: 20040727
  2. GEMCITABINE [Suspect]
     Indication: PANCREATIC CARCINOMA
     Dosage: INITIAL TX DATE: 29-JUN-04. TOTAL DOSE ADM: 1395MG. DOSE HAD BEEN REDUCED ON C1D15.
     Route: 042
     Dates: start: 20040727, end: 20040727
  3. MEGACE [Suspect]

REACTIONS (1)
  - DEEP VEIN THROMBOSIS [None]
